FAERS Safety Report 4691373-3 (Version None)
Quarter: 2005Q2

REPORT INFORMATION
  Report Type: 
  Country: None (occurrence: None)
  Receive Date: 20050615
  Receipt Date: 20050601
  Transmission Date: 20051028
  Serious: Yes (Other)
  Sender: FDA-Public Use
  Company Number: 8009351

PATIENT
  Age: 21 Year
  Sex: Female
  Weight: 84 kg

DRUGS (9)
  1. KEPPRA [Suspect]
     Dosage: PO
     Route: 048
     Dates: start: 20010101
  2. KEPPRA [Suspect]
     Dosage: 3500 MG /D PO
     Route: 048
     Dates: start: 20030901
  3. KEPPRA [Suspect]
     Dosage: 3000 MG/D PO
     Route: 048
  4. KEPPRA [Suspect]
     Dosage: 3500 MG /D PO
     Route: 048
  5. BACTROBAN [Concomitant]
  6. MULTI-VITAMINS [Concomitant]
  7. DARVOCET [Concomitant]
  8. MACROBID [Concomitant]
  9. VITAMIN K [Concomitant]

REACTIONS (5)
  - BREECH PRESENTATION [None]
  - CAESAREAN SECTION [None]
  - DRUG EXPOSURE DURING PREGNANCY [None]
  - PLACENTAL DISORDER [None]
  - PREGNANCY [None]
